FAERS Safety Report 4363684-2 (Version None)
Quarter: 2004Q2

REPORT INFORMATION
  Report Type: 
  Country: None (occurrence: None)
  Receive Date: 20040521
  Receipt Date: 20040521
  Transmission Date: 20050107
  Serious: Yes (Hospitalization)
  Sender: FDA-Public Use
  Company Number: None

PATIENT
  Age: 78 Year
  Sex: Female
  Weight: 65.77 kg

DRUGS (1)
  1. INDOMETHACIN [Suspect]
     Indication: ARTHRALGIA
     Dosage: UP TO 6X/D ORAL
     Route: 048
     Dates: start: 20040324, end: 20040331

REACTIONS (4)
  - GASTRIC DISORDER [None]
  - GASTROINTESTINAL PERFORATION [None]
  - HAEMODIALYSIS [None]
  - RENAL FAILURE ACUTE [None]
